FAERS Safety Report 10331656 (Version 2)
Quarter: 2014Q3

REPORT INFORMATION
  Report Type: Report from Study
  Country: GB (occurrence: GB)
  Receive Date: 20140722
  Receipt Date: 20140722
  Transmission Date: 20150326
  Serious: Yes (Hospitalization)
  Sender: FDA-Public Use
  Company Number: GB-SANOFI-AVENTIS-2013SA011938

PATIENT
  Age: 69 Year
  Sex: Female
  Weight: 83 kg

DRUGS (48)
  1. CARBOPLATIN. [Suspect]
     Active Substance: CARBOPLATIN
     Indication: BREAST CANCER
     Route: 065
     Dates: start: 20130108, end: 20130108
  2. DOMPERIDONE [Concomitant]
     Active Substance: DOMPERIDONE
     Dates: start: 20121229, end: 20121231
  3. DOMPERIDONE [Concomitant]
     Active Substance: DOMPERIDONE
     Dates: start: 20130208, end: 20130208
  4. ATORVASTATIN CALCIUM. [Concomitant]
     Active Substance: ATORVASTATIN CALCIUM
     Dates: start: 20070806
  5. ONDANSETRON [Concomitant]
     Active Substance: ONDANSETRON
     Dates: start: 20130108, end: 20130108
  6. DEXAMETHASONE. [Concomitant]
     Active Substance: DEXAMETHASONE
     Dates: start: 20121219, end: 20121220
  7. DEXAMETHASONE. [Concomitant]
     Active Substance: DEXAMETHASONE
     Dates: start: 20130218, end: 20130218
  8. DEXAMETHASONE. [Concomitant]
     Active Substance: DEXAMETHASONE
     Dates: start: 20130218, end: 20130218
  9. DEXAMETHASONE. [Concomitant]
     Active Substance: DEXAMETHASONE
     Dates: start: 20130219, end: 20130219
  10. TRASTUZUMAB [Suspect]
     Active Substance: TRASTUZUMAB
     Indication: BREAST CANCER
     Route: 058
     Dates: start: 20130108
  11. TRASTUZUMAB [Suspect]
     Active Substance: TRASTUZUMAB
     Indication: BREAST CANCER
     Route: 058
     Dates: start: 20130219, end: 20130329
  12. CARBOPLATIN. [Suspect]
     Active Substance: CARBOPLATIN
     Indication: BREAST CANCER
     Route: 065
     Dates: start: 20121218
  13. WAL PROFEN COLD AND SINUS [Concomitant]
     Active Substance: IBUPROFEN\PSEUDOEPHEDRINE HYDROCHLORIDE
     Dates: start: 20130115
  14. DOMPERIDONE [Concomitant]
     Active Substance: DOMPERIDONE
     Dates: start: 20130111, end: 20130115
  15. FILGRASTIM [Concomitant]
     Active Substance: FILGRASTIM
     Dates: start: 20130110, end: 20130118
  16. FLUCLOXACILLIN [Concomitant]
     Active Substance: FLUCLOXACILLIN
     Dates: start: 20130123, end: 20130127
  17. DEXAMETHASONE. [Concomitant]
     Active Substance: DEXAMETHASONE
     Dates: start: 20130219, end: 20130219
  18. OXYBUTYNIN [Concomitant]
     Active Substance: OXYBUTYNIN
     Dates: start: 20120924
  19. DOMPERIDONE [Concomitant]
     Active Substance: DOMPERIDONE
     Dates: start: 20121221, end: 20121224
  20. DOMPERIDONE [Concomitant]
     Active Substance: DOMPERIDONE
     Dates: start: 20121225, end: 20121226
  21. DOMPERIDONE [Concomitant]
     Active Substance: DOMPERIDONE
     Dates: start: 20121227, end: 20121228
  22. FERROUS FUMARATE [Concomitant]
     Active Substance: FERROUS FUMARATE
     Dates: start: 201301
  23. OMEPRAZOLE. [Concomitant]
     Active Substance: OMEPRAZOLE
     Dates: start: 20121028
  24. ONDANSETRON [Concomitant]
     Active Substance: ONDANSETRON
     Dates: start: 20130131, end: 20130131
  25. LACTULOSE. [Concomitant]
     Active Substance: LACTULOSE
     Dates: start: 20121221, end: 20121221
  26. LACTULOSE. [Concomitant]
     Active Substance: LACTULOSE
     Dates: start: 20130111, end: 20130111
  27. FILGRASTIM [Concomitant]
     Active Substance: FILGRASTIM
     Dates: start: 20130131, end: 20130207
  28. POTASSIUM BICARBONATE/POTASSIUM CHLORIDE [Concomitant]
     Dates: start: 20130115, end: 20130118
  29. DOCETAXEL [Suspect]
     Active Substance: DOCETAXEL
     Indication: BREAST CANCER
     Route: 065
     Dates: start: 20130108, end: 20130108
  30. TRASTUZUMAB [Suspect]
     Active Substance: TRASTUZUMAB
     Indication: BREAST CANCER
     Route: 058
     Dates: start: 20121218
  31. CARBOPLATIN. [Suspect]
     Active Substance: CARBOPLATIN
     Indication: BREAST CANCER
     Route: 065
     Dates: start: 20130219, end: 20130219
  32. DOMPERIDONE [Concomitant]
     Active Substance: DOMPERIDONE
     Dates: start: 20121226, end: 20121226
  33. DOMPERIDONE [Concomitant]
     Active Substance: DOMPERIDONE
     Dates: start: 20130207, end: 20130207
  34. FILGRASTIM [Concomitant]
     Active Substance: FILGRASTIM
     Dates: start: 20121221, end: 20121227
  35. BENDROFLUMETHIAZIDE [Concomitant]
     Active Substance: BENDROFLUMETHIAZIDE
     Dates: start: 20040322
  36. ONDANSETRON [Concomitant]
     Active Substance: ONDANSETRON
     Dates: start: 20121219, end: 20121220
  37. AMOXICILLIN SODIUM/CLAVULANATE POTASSIUM [Concomitant]
     Active Substance: AMOXICILLIN\CLAVULANATE POTASSIUM
     Dates: start: 20130115, end: 20130126
  38. DOMPERIDONE [Concomitant]
     Active Substance: DOMPERIDONE
     Dates: start: 20130209, end: 20130210
  39. ONDANSETRON [Concomitant]
     Active Substance: ONDANSETRON
     Dates: start: 20130129, end: 20130130
  40. CORSODYL [Concomitant]
     Active Substance: CHLORHEXIDINE GLUCONATE
     Dates: start: 20121226, end: 20130102
  41. DOCETAXEL [Suspect]
     Active Substance: DOCETAXEL
     Indication: BREAST CANCER
     Route: 065
     Dates: start: 20130219, end: 20130219
  42. DOCETAXEL [Suspect]
     Active Substance: DOCETAXEL
     Indication: BREAST CANCER
     Route: 065
     Dates: start: 20121218
  43. DOMPERIDONE [Concomitant]
     Active Substance: DOMPERIDONE
     Dates: start: 20130201, end: 20130203
  44. ATENOLOL. [Concomitant]
     Active Substance: ATENOLOL
     Dates: start: 20121003
  45. DEXAMETHASONE. [Concomitant]
     Active Substance: DEXAMETHASONE
     Dates: start: 20130129, end: 20130131
  46. SANDO K [Concomitant]
     Dates: start: 20130115, end: 20130118
  47. TRASTUZUMAB [Suspect]
     Active Substance: TRASTUZUMAB
     Indication: BREAST CANCER
     Route: 058
     Dates: start: 20130425
  48. DOMPERIDONE [Concomitant]
     Active Substance: DOMPERIDONE
     Dates: start: 20130131, end: 20130131

REACTIONS (4)
  - Neutropenic sepsis [Recovered/Resolved]
  - Pyrexia [Recovered/Resolved]
  - Megacolon [Recovered/Resolved]
  - Clostridium difficile infection [Recovered/Resolved with Sequelae]

NARRATIVE: CASE EVENT DATE: 20130115
